FAERS Safety Report 4625640-6 (Version None)
Quarter: 2005Q1

REPORT INFORMATION
  Report Type: 
  Country: None (occurrence: None)
  Receive Date: 20050330
  Receipt Date: 20050311
  Transmission Date: 20050727
  Serious: Yes (Other)
  Sender: FDA-Public Use
  Company Number: FR_050306017

PATIENT
  Age: 42 Year
  Sex: Male

DRUGS (5)
  1. ALIMTA [Suspect]
     Indication: NON-SMALL CELL LUNG CANCER
     Dosage: 500 MG/M2 OTHER
     Dates: start: 20050201, end: 20050201
  2. CORTISONE [Concomitant]
  3. STEROIDS [Concomitant]
  4. VITAMIN B-12 [Concomitant]
  5. FOLIC ACID [Concomitant]

REACTIONS (1)
  - RASH MORBILLIFORM [None]
